FAERS Safety Report 6177728-9 (Version None)
Quarter: 2009Q2

REPORT INFORMATION
  Report Type: 
  Country: None (occurrence: None)
  Receive Date: 20090504
  Receipt Date: 20090422
  Transmission Date: 20091009
  Serious: Yes (Hospitalization)
  Sender: FDA-Public Use
  Company Number: FR-PFIZER INC-2009201386

PATIENT

DRUGS (5)
  1. FLUCONAZOLE [Suspect]
     Indication: CANDIDIASIS
     Dosage: UNK
     Route: 048
     Dates: start: 20090301, end: 20090324
  2. BACTRIM DS [Suspect]
     Dosage: 2 DF, 4X/DAY
     Route: 048
     Dates: start: 20090301, end: 20090327
  3. THIAMINE [Concomitant]
     Dosage: UNK
     Route: 048
     Dates: start: 20090301
  4. MEDROL [Concomitant]
     Dosage: UNK
     Route: 048
     Dates: start: 20090301
  5. PYRIDOXINE [Concomitant]
     Dosage: UNK
     Route: 048
     Dates: start: 20090301

REACTIONS (4)
  - BLOOD CREATININE INCREASED [None]
  - HYPERKALAEMIA [None]
  - HYPOCHLORAEMIA [None]
  - HYPONATRAEMIA [None]
